FAERS Safety Report 17590069 (Version 18)
Quarter: 2021Q1

REPORT INFORMATION
  Report Type: Spontaneous
  Country: CA (occurrence: CA)
  Receive Date: 20200327
  Receipt Date: 20210324
  Transmission Date: 20210419
  Serious: Yes (Hospitalization, Other)
  Sender: FDA-Public Use
  Company Number: CA-CELLTRION INC.-2019CA024129

PATIENT

DRUGS (19)
  1. INFLECTRA [Suspect]
     Active Substance: INFLIXIMAB-DYYB
     Dosage: 500 MG, AT WEEK 6, THEN EVERY 8 WEEKS
     Route: 042
     Dates: start: 20191108
  2. MEZAVANT [Concomitant]
     Active Substance: MESALAMINE
     Dosage: 4800 UG, 4X/DAY
     Route: 048
  3. INFLECTRA [Suspect]
     Active Substance: INFLIXIMAB-DYYB
     Dosage: 900 MG, EVERY 8 WEEKS (INFLIXIMAB 100MG MILLIGRAM(S))
     Route: 042
     Dates: start: 20201228
  4. MEZAVANT [Concomitant]
     Active Substance: MESALAMINE
     Dosage: 4.8 MG, (Q) DAILY
     Route: 048
  5. INFLECTRA [Suspect]
     Active Substance: INFLIXIMAB-DYYB
     Dosage: 900 MG, EVERY 8 WEEKS (INFLIXIMAB 100MG MILLIGRAM(S))
     Route: 042
     Dates: start: 20201228
  6. INFLECTRA [Suspect]
     Active Substance: INFLIXIMAB-DYYB
     Dosage: 900 MG, EVERY 6 WEEKS
     Route: 042
     Dates: start: 20210217, end: 20210217
  7. INFLECTRA [Suspect]
     Active Substance: INFLIXIMAB-DYYB
     Dosage: 700 MG, EVERY 8 WEEKS (INFLIXIMAB 100MG MILLIGRAM(S))
     Route: 042
     Dates: start: 20200131, end: 20200707
  8. INFLECTRA [Suspect]
     Active Substance: INFLIXIMAB-DYYB
     Dosage: 700 MG, EVERY 8 WEEKS
     Route: 042
  9. INFLECTRA [Suspect]
     Active Substance: INFLIXIMAB-DYYB
     Dosage: 700 MG, EVERY 8 WEEKS
     Route: 042
     Dates: start: 20200515
  10. INFLECTRA [Suspect]
     Active Substance: INFLIXIMAB-DYYB
     Dosage: 900 MG, EVERY 8 WEEKS
     Route: 042
     Dates: start: 20201104
  11. INFLECTRA [Suspect]
     Active Substance: INFLIXIMAB-DYYB
     Dosage: 500 MG, AT WEEK 6, THEN EVERY 8 WEEKS (INFLIXIMAB 100MG MILLIGRAM(S))
     Route: 042
     Dates: start: 20190913, end: 20191108
  12. INFLECTRA [Suspect]
     Active Substance: INFLIXIMAB-DYYB
     Dosage: 700 MG, EVERY 8 WEEKS
     Route: 042
     Dates: start: 20200707, end: 20200707
  13. INFLECTRA [Suspect]
     Active Substance: INFLIXIMAB-DYYB
     Dosage: 900 MG, EVERY 8 WEEKS (INFLIXIMAB 100MG MILLIGRAM(S))
     Route: 042
     Dates: start: 20210217
  14. INFLECTRA [Suspect]
     Active Substance: INFLIXIMAB-DYYB
     Dosage: 700 MG, EVERY 8 WEEKS
     Route: 042
     Dates: start: 20200320
  15. INFLECTRA [Suspect]
     Active Substance: INFLIXIMAB-DYYB
     Dosage: 900 MG, EVERY 8 WEEKS (INFLIXIMAB 100MG MILLIGRAM(S))
     Route: 042
     Dates: start: 20201228
  16. INFLECTRA [Suspect]
     Active Substance: INFLIXIMAB-DYYB
     Indication: COLITIS ULCERATIVE
     Dosage: 500 MG AT WEEK 0 (500 MG AT Q 0 WEEK) (INFLIXIMAB 100MG MILLIGRAM(S))
     Route: 042
     Dates: start: 20190803, end: 20190803
  17. INFLECTRA [Suspect]
     Active Substance: INFLIXIMAB-DYYB
     Dosage: 1000 MG, AT WEEK 2, WEEK 6, THEN EVERY 8 WEEKS (1000 MG Q 2 WEEK) (INFLIXIMAB 100MG MILLIGRAM(S))
     Route: 042
     Dates: start: 20190813, end: 20190813
  18. INFLECTRA [Suspect]
     Active Substance: INFLIXIMAB-DYYB
     Dosage: 700 MG, EVERY 8 WEEKS (END DATE: 31?JAN?2020)
     Route: 042
  19. INFLECTRA [Suspect]
     Active Substance: INFLIXIMAB-DYYB
     Dosage: 900 MG, EVERY 8 WEEKS (INFLIXIMAB 100MG MILLIGRAM(S))
     Route: 042
     Dates: start: 20200912, end: 20201228

REACTIONS (23)
  - Pyoderma gangrenosum [Not Recovered/Not Resolved]
  - Off label use [Unknown]
  - Intentional product use issue [Unknown]
  - Product dose omission issue [Unknown]
  - Sinusitis [Recovered/Resolved]
  - Vein disorder [Unknown]
  - Disease recurrence [Not Recovered/Not Resolved]
  - Acne cystic [Recovering/Resolving]
  - Inappropriate schedule of product administration [Unknown]
  - Poor venous access [Unknown]
  - Pneumonia [Unknown]
  - Drug specific antibody present [Unknown]
  - Incorrect dose administered [Unknown]
  - Acne [Recovering/Resolving]
  - Drug level below therapeutic [Not Recovered/Not Resolved]
  - Skin laceration [Unknown]
  - Condition aggravated [Not Recovered/Not Resolved]
  - Blood pressure increased [Unknown]
  - Dermal cyst [Recovering/Resolving]
  - Dehydration [Unknown]
  - Off label use [Unknown]
  - Nasopharyngitis [Recovered/Resolved]
  - Weight increased [Recovering/Resolving]

NARRATIVE: CASE EVENT DATE: 20190913
